FAERS Safety Report 21190771 (Version 1)
Quarter: 2022Q3

REPORT INFORMATION
  Report Type: Spontaneous
  Country: US (occurrence: US)
  Receive Date: 20220809
  Receipt Date: 20220809
  Transmission Date: 20221026
  Serious: Yes (Other)
  Sender: FDA-Public Use
  Company Number: US-MYLANLABS-2022M1084774

PATIENT
  Age: 54 Year
  Sex: Male

DRUGS (3)
  1. LEUCOVORIN [Suspect]
     Active Substance: LEUCOVORIN
     Indication: Adenocarcinoma of colon
     Dosage: UNK, RECEIVED FOUR CYCLES OF FOLFOX REGIMEN
     Route: 065
     Dates: start: 201803, end: 201805
  2. FLUOROURACIL [Suspect]
     Active Substance: FLUOROURACIL
     Indication: Adenocarcinoma of colon
     Dosage: UNK (RECEIVED FOUR CYCLES OF FOLFOX REGIMEN)
     Route: 065
     Dates: start: 201803, end: 201805
  3. OXALIPLATIN [Suspect]
     Active Substance: OXALIPLATIN
     Indication: Adenocarcinoma of colon
     Dosage: UNK (RECEIVED FOUR CYCLES OF FOLFOX REGIMEN)
     Route: 065
     Dates: start: 201803, end: 201805

REACTIONS (2)
  - Drug ineffective [Unknown]
  - Disease progression [Unknown]

NARRATIVE: CASE EVENT DATE: 20180501
